FAERS Safety Report 4811075-X (Version None)
Quarter: 2005Q4

REPORT INFORMATION
  Report Type: 
  Country: None (occurrence: None)
  Receive Date: 20051027
  Receipt Date: 20051020
  Transmission Date: 20060501
  Serious: Yes (Other)
  Sender: FDA-Public Use
  Company Number: US-BRISTOL-MYERS SQUIBB COMPANY-13152723

PATIENT
  Sex: Male

DRUGS (1)
  1. ERBITUX [Suspect]
     Indication: COLON CANCER
     Route: 042
     Dates: start: 20040901, end: 20040901

REACTIONS (5)
  - HYPERHIDROSIS [None]
  - HYPOTENSION [None]
  - SWELLING [None]
  - URTICARIA [None]
  - VOMITING [None]
